FAERS Safety Report 25049453 (Version 1)
Quarter: 2025Q1

REPORT INFORMATION
  Report Type: Spontaneous
  Country: JP (occurrence: JP)
  Receive Date: 20250307
  Receipt Date: 20250307
  Transmission Date: 20250409
  Serious: Yes (Death)
  Sender: RECORDATI
  Company Number: JP-RECORDATI RARE DISEASE INC.-2025001379

PATIENT
  Age: 8 Decade
  Sex: Female

DRUGS (1)
  1. ISTURISA [Suspect]
     Active Substance: OSILODROSTAT PHOSPHATE
     Indication: Pituitary-dependent Cushing^s syndrome
     Dosage: 4 MG DAILY IN 2 INTERVALS (BID)
     Route: 065
     Dates: start: 20241029, end: 202501

REACTIONS (2)
  - Colon cancer [Fatal]
  - Condition aggravated [Fatal]

NARRATIVE: CASE EVENT DATE: 20250101
